FAERS Safety Report 23992510 (Version 1)
Quarter: 2024Q2

REPORT INFORMATION
  Report Type: Spontaneous
  Country: US (occurrence: US)
  Receive Date: 20240620
  Receipt Date: 20240620
  Transmission Date: 20240715
  Serious: Yes (Hospitalization)
  Sender: FDA-Public Use
  Company Number: US-UCBSA-2024030851

PATIENT
  Age: 68 Year
  Sex: Female

DRUGS (1)
  1. BRIVARACETAM [Suspect]
     Active Substance: BRIVARACETAM
     Indication: Seizure
     Dosage: UNK

REACTIONS (4)
  - Neurological decompensation [Recovering/Resolving]
  - Cognitive disorder [Recovering/Resolving]
  - Ammonia increased [Recovering/Resolving]
  - Somnolence [Unknown]
